FAERS Safety Report 24210684 (Version 1)
Quarter: 2024Q3

REPORT INFORMATION
  Report Type: Report from Study
  Country: US (occurrence: US)
  Receive Date: 20240814
  Receipt Date: 20240814
  Transmission Date: 20241016
  Serious: Yes (Other)
  Sender: IPSEN
  Company Number: US-IPSEN Group, Research and Development-2024-15748

PATIENT
  Age: 61 Year
  Sex: Male

DRUGS (1)
  1. ONIVYDE [Suspect]
     Active Substance: IRINOTECAN HYDROCHLORIDE
     Indication: Pancreatic carcinoma
     Route: 042

REACTIONS (3)
  - Chest wall abscess [Recovering/Resolving]
  - Platelet count decreased [Recovering/Resolving]
  - Product dose omission issue [Unknown]
